FAERS Safety Report 26030682 (Version 1)
Quarter: 2025Q4

REPORT INFORMATION
  Report Type: Spontaneous
  Country: CH (occurrence: CH)
  Receive Date: 20251112
  Receipt Date: 20251112
  Transmission Date: 20260118
  Serious: Yes (Disabling, Other)
  Sender: IPCA
  Company Number: CH-IPCA LABORATORIES LIMITED-IPC-2025-CH-002994

PATIENT

DRUGS (4)
  1. CIPROFLOXACIN [Suspect]
     Active Substance: CIPROFLOXACIN
     Indication: Product used for unknown indication
     Dosage: 2 DOSAGE FORM, QD
     Route: 065
  2. AMOXICILLIN [Suspect]
     Active Substance: AMOXICILLIN
     Indication: Epstein-Barr virus infection
     Dosage: UNK
     Route: 065
  3. GABAPENTIN [Suspect]
     Active Substance: GABAPENTIN
     Indication: Small fibre neuropathy
     Dosage: UNK
     Route: 065
  4. AMITRIPTYLINE [Suspect]
     Active Substance: AMITRIPTYLINE
     Indication: Small fibre neuropathy
     Dosage: UNK
     Route: 065

REACTIONS (17)
  - Disability [Unknown]
  - Tendon pain [Recovering/Resolving]
  - Tenosynovitis [Unknown]
  - Paraesthesia [Unknown]
  - Myoclonus [Unknown]
  - Hypoaesthesia [Unknown]
  - Dysaesthesia [Unknown]
  - Palpitations [Unknown]
  - Insomnia [Unknown]
  - Arthralgia [Unknown]
  - Livedo reticularis [Unknown]
  - Carpal tunnel syndrome [Unknown]
  - Small fibre neuropathy [Unknown]
  - Extrasystoles [Unknown]
  - Tinnitus [Unknown]
  - Rash [Unknown]
  - Treatment failure [Unknown]
